FAERS Safety Report 12895198 (Version 4)
Quarter: 2018Q2

REPORT INFORMATION
  Report Type: Spontaneous
  Country: US (occurrence: US)
  Receive Date: 20161029
  Receipt Date: 20180405
  Transmission Date: 20180711
  Serious: Yes (Other)
  Sender: FDA-Public Use
  Company Number: US-BRISTOL-MYERS SQUIBB COMPANY-BMS-2016-089694

PATIENT
  Sex: Female

DRUGS (1)
  1. OPDIVO [Suspect]
     Active Substance: NIVOLUMAB
     Indication: NON-SMALL CELL LUNG CANCER
     Dosage: UNK
     Route: 042
     Dates: start: 201707

REACTIONS (12)
  - Malignant neoplasm progression [Unknown]
  - Pain [Unknown]
  - Somnolence [Unknown]
  - Malaise [Unknown]
  - Haemorrhage [Unknown]
  - Heart rate increased [Recovering/Resolving]
  - Haemoptysis [Unknown]
  - Cough [Unknown]
  - Balance disorder [Unknown]
  - Lung disorder [Unknown]
  - Drug ineffective [Unknown]
  - Alopecia [Unknown]
